FAERS Safety Report 8601359-1 (Version None)
Quarter: 2012Q3

REPORT INFORMATION
  Report Type: 
  Country: None (occurrence: None)
  Receive Date: 20120805
  Receipt Date: 20120724
  Transmission Date: 20120928
  Serious: Yes (Other)
  Sender: FDA-Public Use
  Company Number: CIP-2012-00241

PATIENT

DRUGS (1)
  1. CARBOPLATIN [Suspect]
     Indication: RETINOBLASTOMA
     Dosage: 2 CC (10MG01CC)EVERY 4-6 WEEKS), PERIOCULAR

REACTIONS (1)
  - NEOPLASM MALIGNANT [None]
